FAERS Safety Report 4277341-4 (Version None)
Quarter: 2004Q1

REPORT INFORMATION
  Report Type: 
  Country: None (occurrence: None)
  Receive Date: 20040112
  Receipt Date: 20031229
  Transmission Date: 20041129
  Serious: Yes (Other)
  Sender: FDA-Public Use
  Company Number: A0490758A

PATIENT
  Age: 23 Year
  Sex: Female

DRUGS (2)
  1. NICODERM CQ [Suspect]
     Indication: EX-SMOKER
     Dosage: 21 MG/ TRANSDERMAL
     Route: 062
     Dates: start: 20031128, end: 20031128
  2. ORAL CONTRACEPTIVE [Concomitant]

REACTIONS (1)
  - LOSS OF CONSCIOUSNESS [None]
